FAERS Safety Report 16199484 (Version 1)
Quarter: 2019Q2

REPORT INFORMATION
  Report Type: Spontaneous
  Country: FR (occurrence: FR)
  Receive Date: 20190415
  Receipt Date: 20190415
  Transmission Date: 20190711
  Serious: Yes (Hospitalization, Other)
  Sender: FDA-Public Use
  Company Number: FR-PFIZER INC-2019147801

PATIENT
  Age: 39 Year
  Sex: Male

DRUGS (8)
  1. OXAZEPAM. [Suspect]
     Active Substance: OXAZEPAM
     Dosage: 250 MG, 1X/DAY (IN THE EVENING)
     Route: 065
  2. HAVLANE [Suspect]
     Active Substance: LOPRAZOLAM
     Dosage: 20 MG, UNK (2 TABLETS OF 10 MG OR MORE )
     Route: 065
  3. TRAMADOL HYDROCHLORIDE. [Suspect]
     Active Substance: TRAMADOL HYDROCHLORIDE
     Dosage: 300 MG, 1X/DAY
     Route: 065
  4. TRAMADOL HYDROCHLORIDE. [Suspect]
     Active Substance: TRAMADOL HYDROCHLORIDE
     Dosage: 1200 MG, 1X/DAY
     Route: 065
  5. PREGABALIN. [Suspect]
     Active Substance: PREGABALIN
     Dosage: 300 MG, 2X/DAY (MORNING AND EVENING)
  6. DULOXETINE HYDROCHLORIDE. [Suspect]
     Active Substance: DULOXETINE HYDROCHLORIDE
     Dosage: 120 MG, 1X/DAY
     Route: 065
  7. DOLIPRANE [Suspect]
     Active Substance: ACETAMINOPHEN
     Dosage: 6 G, 1X/DAY
     Route: 065
  8. THIOCOLCHICOSIDE [Suspect]
     Active Substance: THIOCOLCHICOSIDE
     Dosage: 2 DF, 1X/DAY

REACTIONS (3)
  - Drug abuse [Unknown]
  - Inappropriate schedule of product administration [Unknown]
  - Overdose [Unknown]
